FAERS Safety Report 8835695 (Version 6)
Quarter: 2013Q3

REPORT INFORMATION
  Report Type: Report from Study
  Country: JP (occurrence: JP)
  Receive Date: 20121011
  Receipt Date: 20130802
  Transmission Date: 20140515
  Serious: Yes (Death, Hospitalization, Other)
  Sender: FDA-Public Use
  Company Number: JP-009507513-1210JPN004889

PATIENT
  Age: 59 Year
  Sex: Male
  Weight: 62 kg

DRUGS (9)
  1. PEGINTRON [Suspect]
     Indication: CHRONIC HEPATITIS C
     Dosage: 1.0 MICROGRAM PER KILOGRAM, QW
     Route: 058
     Dates: start: 20120702, end: 20120708
  2. PEGINTRON [Suspect]
     Dosage: 1.5 MICROGRAM PER KILOGRAM, QW
     Route: 058
     Dates: start: 20120709, end: 20120827
  3. REBETOL [Suspect]
     Indication: CHRONIC HEPATITIS C
     Dosage: 600 MG, QD
     Route: 048
     Dates: start: 20120702, end: 20120903
  4. TELAVIC [Suspect]
     Indication: CHRONIC HEPATITIS C
     Dosage: 2250 MG, QD
     Route: 048
     Dates: start: 20120702, end: 20120806
  5. TELAVIC [Suspect]
     Dosage: 1500 MG, QD
     Route: 048
     Dates: start: 20120807, end: 20120903
  6. TALION (BEPOTASTINE BESYLATE) [Concomitant]
     Indication: PROPHYLAXIS
     Dosage: 20 MG, QD
     Route: 048
     Dates: start: 20120702, end: 20120903
  7. PREDONINE [Concomitant]
     Indication: RASH
     Dosage: 10-5 MG/DAY
     Route: 048
     Dates: start: 20120706
  8. PREDONINE [Concomitant]
     Dosage: 20 MG, QD
     Route: 048
     Dates: end: 20120903
  9. EPADEL [Concomitant]
     Indication: ANAEMIA
     Dosage: 1800 MG, QD
     Route: 048
     Dates: start: 20120730, end: 20120903

REACTIONS (18)
  - Spondylitis [Fatal]
  - Staphylococcal sepsis [Fatal]
  - Hepatic cirrhosis [Fatal]
  - Disuse syndrome [Fatal]
  - Infectious pleural effusion [Fatal]
  - Subarachnoid haemorrhage [Fatal]
  - Rash generalised [Recovering/Resolving]
  - Erythema [Not Recovered/Not Resolved]
  - Pancytopenia [Not Recovered/Not Resolved]
  - Anaemia [Not Recovered/Not Resolved]
  - Sepsis [Recovered/Resolved]
  - C-reactive protein increased [Not Recovered/Not Resolved]
  - Hypoalbuminaemia [Not Recovered/Not Resolved]
  - Renal impairment [Recovered/Resolved]
  - Disseminated intravascular coagulation [Recovering/Resolving]
  - Acute respiratory distress syndrome [Recovering/Resolving]
  - Chest wall abscess [Not Recovered/Not Resolved]
  - Sepsis [Not Recovered/Not Resolved]
